FAERS Safety Report 23456440 (Version 1)
Quarter: 2024Q1

REPORT INFORMATION
  Report Type: Spontaneous
  Country: US (occurrence: US)
  Receive Date: 20240130
  Receipt Date: 20240130
  Transmission Date: 20240409
  Serious: No
  Sender: FDA-Public Use
  Company Number: US-BRISTOL-MYERS SQUIBB COMPANY-2024-015000

PATIENT
  Age: 69 Year
  Sex: Male

DRUGS (1)
  1. THALOMID [Suspect]
     Active Substance: THALIDOMIDE
     Indication: Amyloidosis
     Route: 048
     Dates: start: 202308

REACTIONS (5)
  - Peripheral swelling [Unknown]
  - Dry skin [Unknown]
  - Muscle spasms [Unknown]
  - Ageusia [Unknown]
  - Off label use [Unknown]
